FAERS Safety Report 10083777 (Version 2)
Quarter: 2014Q2

REPORT INFORMATION
  Report Type: Spontaneous
  Country: DE (occurrence: DE)
  Receive Date: 20140417
  Receipt Date: 20140528
  Transmission Date: 20141212
  Serious: Yes (Other)
  Sender: FDA-Public Use
  Company Number: DE-VERTEX PHARMACEUTICALS INC-2014-001963

PATIENT
  Sex: Female
  Weight: 28 kg

DRUGS (7)
  1. INCIVO [Suspect]
     Indication: CHRONIC HEPATITIS C
     Dosage: 2250 MG, QD
     Route: 048
  2. INCIVO [Suspect]
     Dosage: 1500 MG, QD
     Route: 048
     Dates: start: 20120308
  3. PEG-INTERFERON ALFA 2B [Suspect]
     Indication: CHRONIC HEPATITIS C
     Dosage: 100 MG/M2, UNK
     Route: 058
     Dates: start: 20120308, end: 20130207
  4. RIBAVIRIN [Suspect]
     Indication: CHRONIC HEPATITIS C
     Dosage: 15 MG/KG, UNK
     Route: 048
     Dates: start: 20120308, end: 20130207
  5. DEFEROXAMINE [Concomitant]
     Indication: CHELATION THERAPY
     Dosage: 7 G, QW
     Route: 058
  6. ISOCILLIN [Concomitant]
     Indication: ASPLENIA
     Dosage: DOSAGE FORM: UNSPECIFIED, 1X 1.2 MEGA
     Route: 048
  7. VIGANTOLETTEN [Concomitant]
     Indication: VITAMIN D DEFICIENCY
     Dosage: DOSAGE FORM: UNSPECIFIED, 1X1000 IE
     Route: 048

REACTIONS (4)
  - Sarcoidosis [Not Recovered/Not Resolved]
  - Bone marrow transplant [Not Recovered/Not Resolved]
  - Off label use [Unknown]
  - Pruritus [Recovered/Resolved]
